FAERS Safety Report 4667523-1 (Version None)
Quarter: 2005Q2

REPORT INFORMATION
  Report Type: 
  Country: None (occurrence: None)
  Receive Date: 20050519
  Receipt Date: 20050519
  Transmission Date: 20051028
  Serious: Yes (Disabling)
  Sender: FDA-Public Use
  Company Number: None

PATIENT
  Age: 79 Year
  Sex: Male
  Weight: 61.6892 kg

DRUGS (7)
  1. ZOMETA [Suspect]
     Indication: METASTASES TO BONE
     Dosage: 4MG   MONTHLY   INTRAVENOU
     Route: 042
     Dates: start: 20030605, end: 20041102
  2. ZOMETA [Suspect]
     Indication: PROSTATE CANCER
     Dosage: 4MG   MONTHLY   INTRAVENOU
     Route: 042
     Dates: start: 20030605, end: 20041102
  3. ZOLEDRONIC ACID [Concomitant]
  4. HYDROCHLOROTHIAZIDE [Concomitant]
  5. PRINIVIL [Concomitant]
  6. NORVASC [Concomitant]
  7. ATENOLOL [Concomitant]

REACTIONS (1)
  - OSTEONECROSIS [None]
